FAERS Safety Report 10788650 (Version 3)
Quarter: 2015Q2

REPORT INFORMATION
  Report Type: Spontaneous
  Country: BR (occurrence: BR)
  Receive Date: 20150212
  Receipt Date: 20150505
  Transmission Date: 20150821
  Serious: Yes (Other)
  Sender: FDA-Public Use
  Company Number: BR-PFIZER INC-2015031950

PATIENT
  Age: 59 Year
  Sex: Female
  Weight: 46 kg

DRUGS (5)
  1. FELDENE [Suspect]
     Active Substance: PIROXICAM
     Indication: MYALGIA
     Dosage: 1 DF, ONCE A DAY, AS NEEDED
  2. APRAZ [Concomitant]
     Dosage: UNK
     Dates: start: 201412
  3. FELDENE [Suspect]
     Active Substance: PIROXICAM
     Indication: SCOLIOSIS
     Dosage: ONE TABLET (20 MG), AFTER COFFEE AND ANOTHER ONE IN THE DINNER
     Route: 060
  4. FELDENE [Suspect]
     Active Substance: PIROXICAM
     Indication: MUSCULOSKELETAL PAIN
     Dosage: 3X/DAY (EVERY 8 HOURS)
     Route: 060
     Dates: start: 20150120
  5. ADDERA D3 [Concomitant]
     Active Substance: CHOLECALCIFEROL
     Dosage: 7000 IU, UNK
     Dates: start: 201408

REACTIONS (6)
  - Urinary retention [Recovered/Resolved]
  - Malaise [Recovered/Resolved]
  - Tachycardia [Recovered/Resolved]
  - Depression [Recovered/Resolved]
  - Anxiety [Recovered/Resolved]
  - Somnolence [Not Recovered/Not Resolved]
